FAERS Safety Report 6522664-9 (Version None)
Quarter: 2009Q4

REPORT INFORMATION
  Report Type: 
  Country: None (occurrence: None)
  Receive Date: 20091224
  Receipt Date: 20091215
  Transmission Date: 20100525
  Serious: Yes (Life-Threatening, Hospitalization, Other)
  Sender: FDA-Public Use
  Company Number: AUR-APL-2009-01594

PATIENT
  Age: 38 Week

DRUGS (2)
  1. AMOXICILLIN [Suspect]
     Indication: PROPHYLAXIS
     Dosage: 2G, ONCE, TRANSPLACENT.
     Route: 064
  2. AMOXICILLIN [Suspect]
     Indication: STREPTOCOCCAL INFECTION
     Dosage: 2G, ONCE, TRANSPLACENT.
     Route: 064

REACTIONS (7)
  - APGAR SCORE LOW [None]
  - BLOOD PH DECREASED [None]
  - BRADYCARDIA FOETAL [None]
  - CAESAREAN SECTION [None]
  - MATERNAL DRUGS AFFECTING FOETUS [None]
  - PCO2 INCREASED [None]
  - PO2 DECREASED [None]
